FAERS Safety Report 5442268-9 (Version None)
Quarter: 2007Q3

REPORT INFORMATION
  Report Type: 
  Country: None (occurrence: None)
  Receive Date: 20070731
  Receipt Date: 20070612
  Transmission Date: 20080115
  Serious: No
  Sender: FDA-Public Use
  Company Number: US200706002908

PATIENT
  Age: 67 Year
  Sex: Female
  Weight: 99.8 kg

DRUGS (4)
  1. BYETTA [Suspect]
     Indication: TYPE 2 DIABETES MELLITUS
     Dosage: 5 UG, 2/D, SUBCUTANEOUS; 10 UG, 2/D, SUBCUTANEOUS
     Route: 058
     Dates: start: 20070521, end: 20070610
  2. BYETTA [Suspect]
     Indication: TYPE 2 DIABETES MELLITUS
     Dosage: 5 UG, 2/D, SUBCUTANEOUS; 10 UG, 2/D, SUBCUTANEOUS
     Route: 058
     Dates: start: 20070611
  3. GLUCOTROL [Concomitant]
  4. PRILOSEC [Concomitant]

REACTIONS (6)
  - BLOOD GLUCOSE DECREASED [None]
  - BLOOD GLUCOSE FLUCTUATION [None]
  - DECREASED APPETITE [None]
  - NAUSEA [None]
  - STOMACH DISCOMFORT [None]
  - VOMITING [None]
